FAERS Safety Report 4379974-3 (Version None)
Quarter: 2004Q2

REPORT INFORMATION
  Report Type: 
  Country: None (occurrence: None)
  Receive Date: 20040614
  Receipt Date: 20040531
  Transmission Date: 20050107
  Serious: Yes (Hospitalization)
  Sender: FDA-Public Use
  Company Number: M2004-0620

PATIENT
  Age: 48 Year
  Sex: Female
  Weight: 70 kg

DRUGS (7)
  1. DICLOFENAC 25MG TABLETS, UNKNOWN MANUFACTURER [Suspect]
     Indication: BACK PAIN
     Dosage: 50 MG TDS, ORAL
     Route: 048
     Dates: start: 20040201, end: 20040507
  2. BECLOMETHASONE DIPROPIONATE [Concomitant]
  3. SALMETEROL [Concomitant]
  4. ALBUTEROL SULFATE [Concomitant]
  5. DOTHIEPIN HYDROCHLORIDE [Concomitant]
  6. ACETAMINOPHEN [Concomitant]
  7. CODEINE [Concomitant]

REACTIONS (8)
  - CHEST PAIN [None]
  - DUODENAL ULCER HAEMORRHAGE [None]
  - DYSPNOEA [None]
  - GASTRITIS [None]
  - HAEMATEMESIS [None]
  - HAEMOGLOBIN DECREASED [None]
  - HELICOBACTER PYLORI IDENTIFICATION TEST POSITIVE [None]
  - HIATUS HERNIA [None]
